FAERS Safety Report 23774674 (Version 1)
Quarter: 2024Q2

REPORT INFORMATION
  Report Type: Spontaneous
  Country: US (occurrence: None)
  Receive Date: 20240423
  Receipt Date: 20240423
  Transmission Date: 20240715
  Serious: Yes (Hospitalization)
  Sender: FDA-Public Use
  Company Number: None

PATIENT
  Age: 72 Year
  Sex: Male
  Weight: 76 kg

DRUGS (1)
  1. DIVALPROEX SODIUM ER [Suspect]
     Active Substance: DIVALPROEX SODIUM
     Dosage: FREQUENCY : AS DIRECTED;?
     Route: 048
     Dates: start: 20230520, end: 20230609

REACTIONS (7)
  - Hyperammonaemia [None]
  - Metabolic encephalopathy [None]
  - Gait disturbance [None]
  - Asthenia [None]
  - Mental impairment [None]
  - Ammonia increased [None]
  - Blood glucose increased [None]

NARRATIVE: CASE EVENT DATE: 20230530
